FAERS Safety Report 13068516 (Version 1)
Quarter: 2016Q4

REPORT INFORMATION
  Report Type: Spontaneous
  Country: US (occurrence: US)
  Receive Date: 20161227
  Receipt Date: 20161227
  Transmission Date: 20170207
  Serious: Yes (Hospitalization, Other)
  Sender: FDA-Public Use
  Company Number: None

PATIENT

DRUGS (1)
  1. ASPIRIN. [Suspect]
     Active Substance: ASPIRIN

REACTIONS (9)
  - Dyspnoea [None]
  - Toxicity to various agents [None]
  - Dialysis [None]
  - Intentional overdose [None]
  - Cardiac arrest [None]
  - Mental status changes [None]
  - Seizure [None]
  - Nervous system disorder [None]
  - Brain injury [None]

NARRATIVE: CASE EVENT DATE: 20160717
